FAERS Safety Report 19997480 (Version 2)
Quarter: 2021Q4

REPORT INFORMATION
  Report Type: Spontaneous
  Country: US (occurrence: None)
  Receive Date: 20211026
  Receipt Date: 20211104
  Transmission Date: 20220303
  Serious: Yes (Hospitalization)
  Sender: FDA-Public Use
  Company Number: US-ROCHE-2936735

PATIENT
  Age: 53 Year
  Sex: Female
  Weight: 67.2 kg

DRUGS (4)
  1. XELODA [Suspect]
     Active Substance: CAPECITABINE
     Indication: Breast cancer
     Dosage: FREQUENCY: QAM
     Route: 048
     Dates: start: 20210819, end: 20210829
  2. XELODA [Suspect]
     Active Substance: CAPECITABINE
     Dosage: FREQUENCY: QPM
     Route: 048
     Dates: start: 20210819, end: 20210829
  3. FULVESTRANT [Suspect]
     Active Substance: FULVESTRANT
     Indication: Breast cancer
     Route: 030
     Dates: start: 20210610, end: 20210728
  4. PALBOCICLIB [Suspect]
     Active Substance: PALBOCICLIB
     Indication: Breast cancer
     Dosage: FREQUENCY : DAILY
     Route: 048
     Dates: start: 20210610, end: 20210728

REACTIONS (4)
  - Hyponatraemia [Recovering/Resolving]
  - Hypovolaemia [Recovering/Resolving]
  - Hypotension [Recovering/Resolving]
  - Stomatitis [Unknown]
